FAERS Safety Report 24190385 (Version 1)
Quarter: 2024Q3

REPORT INFORMATION
  Report Type: Spontaneous
  Country: GB (occurrence: GB)
  Receive Date: 20240808
  Receipt Date: 20240808
  Transmission Date: 20241016
  Serious: Yes (Disabling)
  Sender: TEVA
  Company Number: None

PATIENT
  Age: 41 Year
  Sex: Female

DRUGS (1)
  1. HALOPERIDOL [Suspect]
     Active Substance: HALOPERIDOL
     Route: 065

REACTIONS (2)
  - Excessive eye blinking [Not Recovered/Not Resolved]
  - Tongue spasm [Not Recovered/Not Resolved]

NARRATIVE: CASE EVENT DATE: 20231110
